FAERS Safety Report 19483043 (Version 1)
Quarter: 2021Q3

REPORT INFORMATION
  Report Type: Other
  Country: CN (occurrence: CN)
  Receive Date: 20210701
  Receipt Date: 20210701
  Transmission Date: 20211014
  Serious: Yes (Other)
  Sender: FDA-Public Use
  Company Number: CN-ROCHE-2859379

PATIENT

DRUGS (1)
  1. RITUXIMAB. [Suspect]
     Active Substance: RITUXIMAB
     Indication: PRODUCT USED FOR UNKNOWN INDICATION
     Dosage: 100 TO 700 MG
     Route: 041

REACTIONS (18)
  - Traumatic lung injury [Unknown]
  - Myelosuppression [Unknown]
  - Herpes zoster [Unknown]
  - Agranulocytosis [Unknown]
  - Tumour lysis syndrome [Unknown]
  - Interstitial lung disease [Unknown]
  - Hepatitis B reactivation [Unknown]
  - Hepatocellular injury [Unknown]
  - Abdominal pain [Unknown]
  - Ascites [Unknown]
  - Condition aggravated [Unknown]
  - Supraventricular tachycardia [Unknown]
  - Pneumonia [Unknown]
  - Anaphylactic shock [Unknown]
  - Anaphylactoid reaction [Unknown]
  - Alveolitis [Unknown]
  - Renal injury [Unknown]
  - Respiratory failure [Unknown]
